FAERS Safety Report 7493815-7 (Version None)
Quarter: 2011Q2

REPORT INFORMATION
  Report Type: 
  Country: None (occurrence: None)
  Receive Date: 20110513
  Receipt Date: 20110503
  Transmission Date: 20111010
  Serious: Yes (Hospitalization)
  Sender: FDA-Public Use
  Company Number: 912526

PATIENT
  Sex: Female

DRUGS (3)
  1. VANCOMYCIN HYDROCHLORIDE [Suspect]
     Indication: SKIN ULCER
  2. (TEICOPLANIN) [Suspect]
     Indication: SKIN ULCER
  3. METRONIDAZOLE [Suspect]
     Indication: SKIN ULCER

REACTIONS (5)
  - DRUG INEFFECTIVE [None]
  - SEPTIC SHOCK [None]
  - INFECTED SKIN ULCER [None]
  - DISEASE PROGRESSION [None]
  - GENERAL PHYSICAL HEALTH DETERIORATION [None]
